FAERS Safety Report 9286207 (Version 1)
Quarter: 2013Q2

REPORT INFORMATION
  Report Type: Spontaneous
  Country: US (occurrence: None)
  Receive Date: 20130510
  Receipt Date: 20130510
  Transmission Date: 20140414
  Serious: Yes (Hospitalization)
  Sender: FDA-Public Use
  Company Number: None

PATIENT
  Age: 39 Year
  Sex: Male
  Weight: 68.04 kg

DRUGS (5)
  1. LURASIDONE [Suspect]
     Indication: SCHIZOAFFECTIVE DISORDER
     Dosage: 40MG BID, ORAL
     Route: 048
     Dates: start: 20121115, end: 20130417
  2. BENZOTROPINE [Concomitant]
  3. LORAZEPAM [Concomitant]
  4. BUPROPRION [Concomitant]
  5. PALIPERIDONE, [Concomitant]

REACTIONS (2)
  - Musculoskeletal stiffness [None]
  - Investigation [None]
